FAERS Safety Report 17054826 (Version 1)
Quarter: 2019Q4

REPORT INFORMATION
  Report Type: Spontaneous
  Country: BD (occurrence: BD)
  Receive Date: 20191120
  Receipt Date: 20191120
  Transmission Date: 20200122
  Serious: Yes (Hospitalization, Other)
  Sender: FDA-Public Use
  Company Number: BD-BAUSCH-BL-2019-061080

PATIENT
  Age: 38 Year
  Sex: Male
  Weight: 60 kg

DRUGS (3)
  1. PREDNISOLONE. [Suspect]
     Active Substance: PREDNISOLONE
     Indication: IGA NEPHROPATHY
     Dosage: 1 MG/KG/DAY
     Route: 048
     Dates: start: 201502
  2. CIPROFLOXACIN. [Concomitant]
     Active Substance: CIPROFLOXACIN
     Indication: URINARY TRACT INFECTION
     Route: 048
     Dates: start: 2015, end: 2015
  3. PREDNISOLONE. [Suspect]
     Active Substance: PREDNISOLONE
     Dosage: GRADUALLY TAPERED OFF OVER THE NEXT 12 MONTHS (TOTAL DURATION: 58 WEEKS)
     Route: 048
     Dates: end: 201603

REACTIONS (3)
  - Steroid diabetes [Recovered/Resolved]
  - Genitourinary tract infection [Recovered/Resolved]
  - Burkholderia pseudomallei infection [Recovered/Resolved]

NARRATIVE: CASE EVENT DATE: 201503
